FAERS Safety Report 12073623 (Version 6)
Quarter: 2020Q1

REPORT INFORMATION
  Report Type: Spontaneous
  Country: US (occurrence: US)
  Receive Date: 20160212
  Receipt Date: 20200303
  Transmission Date: 20200409
  Serious: Yes (Hospitalization)
  Sender: FDA-Public Use
  Company Number: US-JNJFOC-20160205808

PATIENT
  Age: 29 Year
  Sex: Female

DRUGS (5)
  1. XARELTO [Suspect]
     Active Substance: RIVAROXABAN
     Indication: ANTIPHOSPHOLIPID SYNDROME
     Dosage: 15 MG AND 20 MG
     Route: 048
     Dates: start: 20130104, end: 20130202
  2. ASPRIN [Suspect]
     Active Substance: ASPIRIN
     Indication: ADRENAL INSUFFICIENCY
  3. XARELTO [Suspect]
     Active Substance: RIVAROXABAN
     Indication: DEEP VEIN THROMBOSIS
  4. ASPRIN [Suspect]
     Active Substance: ASPIRIN
     Indication: CONNECTIVE TISSUE DISORDER
     Route: 065
  5. LOVENOX [Suspect]
     Active Substance: ENOXAPARIN SODIUM
     Indication: ANTIPHOSPHOLIPID SYNDROME
     Route: 058

REACTIONS (2)
  - Adrenal haemorrhage [Recovering/Resolving]
  - Myocarditis [Unknown]

NARRATIVE: CASE EVENT DATE: 20130202
